FAERS Safety Report 6206478-5 (Version None)
Quarter: 2009Q2

REPORT INFORMATION
  Report Type: 
  Country: None (occurrence: None)
  Receive Date: 20090528
  Receipt Date: 20090518
  Transmission Date: 20091009
  Serious: Yes (Disabling)
  Sender: FDA-Public Use
  Company Number: PHHY2009IT19264

PATIENT
  Sex: Female

DRUGS (16)
  1. ZOMETA [Suspect]
     Indication: BREAST CANCER METASTATIC
     Dosage: 4 MG, UNK
     Route: 042
     Dates: start: 20060530, end: 20071130
  2. DARBEPOETIN ALFA [Concomitant]
     Dosage: 300 MG, UNK
     Route: 058
  3. ANTRA [Concomitant]
     Dosage: 20 MG, UNK
     Route: 048
  4. ANTRA [Concomitant]
     Dosage: 40 MG, UNK
     Route: 048
  5. CALCIUM SANDOZ [Concomitant]
     Dosage: 1000 MG, UNK
     Route: 048
  6. DIBASE [Concomitant]
     Dosage: 25 DROPS
  7. MAG 2 [Concomitant]
     Dosage: 2.25G
     Route: 048
  8. ZOLOFT [Concomitant]
     Dosage: 50 MG/DAY
     Route: 048
  9. LYRICA [Concomitant]
     Dosage: 75 MG/DAY
     Route: 048
  10. MORPHINE [Concomitant]
     Dosage: 120 MG/DAY
     Route: 048
  11. AULIN [Concomitant]
     Dosage: 100 MG/DAY
     Route: 048
  12. AULIN [Concomitant]
     Dosage: 200 MG/DAY
     Route: 048
  13. DELTACORTENE [Concomitant]
     Dosage: 25 MG/DAY
     Route: 048
  14. SYNACTHEN [Concomitant]
     Dosage: 1 MG/ML
  15. NOVABAN [Concomitant]
     Dosage: 5 MG/DAY
  16. CELEBREX [Concomitant]
     Dosage: 400 MG/DAY
     Route: 048

REACTIONS (1)
  - OSTEONECROSIS [None]
